FAERS Safety Report 21933089 (Version 3)
Quarter: 2023Q2

REPORT INFORMATION
  Report Type: Spontaneous
  Country: JP (occurrence: JP)
  Receive Date: 20230131
  Receipt Date: 20230509
  Transmission Date: 20230721
  Serious: Yes (Other)
  Sender: FDA-Public Use
  Company Number: JP-MSD-M2022-47964

PATIENT
  Age: 8 Decade
  Sex: Male

DRUGS (5)
  1. KEYTRUDA [Suspect]
     Active Substance: PEMBROLIZUMAB
     Indication: Oesophageal carcinoma
     Dosage: 200 MILLIGRAM, Q3W
     Route: 041
     Dates: start: 20221012, end: 20221108
  2. KEYTRUDA [Suspect]
     Active Substance: PEMBROLIZUMAB
     Dosage: 200 MILLIGRAM, Q3W
     Route: 041
     Dates: start: 202212
  3. CISPLATIN [Suspect]
     Active Substance: CISPLATIN
     Indication: Oesophageal carcinoma
     Dosage: 80 MILLIGRAM/SQ. METER, Q3W
     Route: 041
     Dates: start: 20221012, end: 2023
  4. CISPLATIN [Suspect]
     Active Substance: CISPLATIN
     Dosage: 64 MILLIGRAM/SQ. METER, Q3W
     Route: 041
     Dates: start: 20230328
  5. FLUOROURACIL [Suspect]
     Active Substance: FLUOROURACIL
     Indication: Oesophageal carcinoma
     Dosage: 800 MILLIGRAM/SQ. METER, 5 TIMES EVERY 3 WEEKS
     Route: 041
     Dates: start: 20221012

REACTIONS (3)
  - Hypothyroidism [Recovered/Resolved]
  - Renal impairment [Not Recovered/Not Resolved]
  - White blood cell count decreased [Recovered/Resolved]

NARRATIVE: CASE EVENT DATE: 20221107
